FAERS Safety Report 12715553 (Version 3)
Quarter: 2016Q4

REPORT INFORMATION
  Report Type: Spontaneous
  Country: FR (occurrence: FR)
  Receive Date: 20160906
  Receipt Date: 20161004
  Transmission Date: 20170207
  Serious: Yes (Death, Life-Threatening, Hospitalization)
  Sender: FDA-Public Use
  Company Number: FR-ACCORD-043645

PATIENT
  Age: 69 Year
  Sex: Female
  Weight: 88 kg

DRUGS (13)
  1. AMAREL [Concomitant]
     Active Substance: GLIMEPIRIDE
  2. AVLOCARDYL [Concomitant]
     Active Substance: PROPRANOLOL HYDROCHLORIDE
  3. KARDEGIC [Concomitant]
     Active Substance: ASPIRIN LYSINE
  4. RILMENIDINE/RILMENIDINE PHOSPHATE [Concomitant]
  5. METOCLOPRAMIDE. [Concomitant]
     Active Substance: METOCLOPRAMIDE
     Indication: PREMEDICATION
     Dosage: BEFORE MEALS
     Route: 048
  6. COTAREG [Concomitant]
     Active Substance: HYDROCHLOROTHIAZIDE\VALSARTAN
  7. GRANISETRON [Concomitant]
     Active Substance: GRANISETRON
     Indication: PREMEDICATION
     Dosage: MORNING AND EVENING
     Route: 048
  8. ONDANSETRON [Concomitant]
     Active Substance: ONDANSETRON
     Indication: PREMEDICATION
     Dosage: IN MORNING?IN EVENING
  9. DOCETAXEL ACCORD [Suspect]
     Active Substance: DOCETAXEL
     Indication: BREAST CANCER
     Dosage: 75 MG/M2
     Dates: start: 20160726
  10. PREDNISONE. [Concomitant]
     Active Substance: PREDNISONE
     Indication: PREMEDICATION
     Dosage: AT NIGHT
     Route: 048
  11. METHYLPREDNISOLONE. [Concomitant]
     Active Substance: METHYLPREDNISOLONE
     Indication: PREMEDICATION
  12. NEULASTA [Concomitant]
     Active Substance: PEGFILGRASTIM
  13. PRAVADUAL [Concomitant]
     Active Substance: ASPIRIN\PRAVASTATIN

REACTIONS (8)
  - Septic shock [Fatal]
  - Febrile bone marrow aplasia [Fatal]
  - Atelectasis [Fatal]
  - Diarrhoea [Fatal]
  - Mucosal inflammation [Fatal]
  - Multiple organ dysfunction syndrome [Fatal]
  - Nephritis [Fatal]
  - Psychomotor skills impaired [Fatal]

NARRATIVE: CASE EVENT DATE: 20160729
